FAERS Safety Report 13551007 (Version 1)
Quarter: 2017Q2

REPORT INFORMATION
  Report Type: Report from Study
  Country: US (occurrence: US)
  Receive Date: 20170516
  Receipt Date: 20170516
  Transmission Date: 20170830
  Serious: Yes (Hospitalization)
  Sender: FDA-Public Use
  Company Number: US-JNJFOC-20170423091

PATIENT
  Sex: Female

DRUGS (17)
  1. IMBRUVICA [Suspect]
     Active Substance: IBRUTINIB
     Indication: CHRONIC LYMPHOCYTIC LEUKAEMIA
     Route: 048
  2. POTASSIUM [Concomitant]
     Active Substance: POTASSIUM
  3. PIOGLITAZONE HCL [Concomitant]
     Active Substance: PIOGLITAZONE
  4. AMLODIPINE BESYLATE. [Concomitant]
     Active Substance: AMLODIPINE BESYLATE
  5. ESCITALOPRAM OXALATE. [Concomitant]
     Active Substance: ESCITALOPRAM OXALATE
  6. LOSARTAN. [Concomitant]
     Active Substance: LOSARTAN
  7. TRAZODONE HYDROCHLORIDE. [Concomitant]
     Active Substance: TRAZODONE HYDROCHLORIDE
  8. HYDROXYZINE HCL [Concomitant]
     Active Substance: HYDROXYZINE HYDROCHLORIDE
  9. LYRICA [Concomitant]
     Active Substance: PREGABALIN
  10. HUMULIN NOS [Concomitant]
     Active Substance: INSULIN HUMAN
  11. ALBUTEROL SULFATE. [Concomitant]
     Active Substance: ALBUTEROL SULFATE
  12. LISINOPRIL. [Concomitant]
     Active Substance: LISINOPRIL
  13. PANTOPRAZOLE SODIUM. [Concomitant]
     Active Substance: PANTOPRAZOLE SODIUM
  14. XARELTO [Concomitant]
     Active Substance: RIVAROXABAN
  15. ATORVASTATIN CALCIUM. [Concomitant]
     Active Substance: ATORVASTATIN CALCIUM
  16. FLUTICASONE W/SALMETEROL [Concomitant]
     Active Substance: FLUTICASONE PROPIONATE\SALMETEROL XINAFOATE
  17. JANUVIA [Concomitant]
     Active Substance: SITAGLIPTIN PHOSPHATE

REACTIONS (5)
  - Skin graft [Not Recovered/Not Resolved]
  - Vomiting [Recovering/Resolving]
  - Nausea [Recovering/Resolving]
  - Amputation [Not Recovered/Not Resolved]
  - Hypotension [Not Recovered/Not Resolved]

NARRATIVE: CASE EVENT DATE: 2017
